FAERS Safety Report 7579245-8 (Version None)
Quarter: 2011Q2

REPORT INFORMATION
  Report Type: 
  Country: None (occurrence: None)
  Receive Date: 20110628
  Receipt Date: 20110615
  Transmission Date: 20111010
  Serious: Yes (Life-Threatening, Hospitalization, Other)
  Sender: FDA-Public Use
  Company Number: JP-AMGEN-JPNSP2011030853

PATIENT
  Age: 58 Year
  Sex: Male

DRUGS (8)
  1. CALCIUM CARBONATE [Concomitant]
     Dosage: 3 G, UNK
  2. BENIDIPINE HYDROCHLORIDE [Concomitant]
     Dosage: 4 MG, UNK
  3. INSULIN [Concomitant]
  4. HEPARIN SODIUM [Concomitant]
     Dosage: 600 UNK, UNK
  5. HEPARIN [Concomitant]
     Dosage: 800 IU, UNK
  6. BROTIZOLAM [Concomitant]
     Dosage: 0.25 MG, UNK
  7. CINACALCET HYDROCHLORIDE [Suspect]
     Indication: HYPERPARATHYROIDISM SECONDARY
  8. LANSOPRAZOLE [Concomitant]
     Dosage: 15 MG, UNK

REACTIONS (6)
  - EOSINOPHILIA [None]
  - VASCULITIS [None]
  - RENAL HAEMORRHAGE [None]
  - RENAL HAEMATOMA [None]
  - ANAEMIA [None]
  - DRUG HYPERSENSITIVITY [None]
